FAERS Safety Report 7017719-9 (Version None)
Quarter: 2010Q3

REPORT INFORMATION
  Report Type: 
  Country: None (occurrence: None)
  Receive Date: 20100928
  Receipt Date: 20100913
  Transmission Date: 20110219
  Serious: Yes (Death)
  Sender: FDA-Public Use
  Company Number: US-JNJFOC-20100705390

PATIENT
  Sex: Male
  Weight: 88.91 kg

DRUGS (12)
  1. FENTANYL [Suspect]
     Indication: CLAVICLE FRACTURE
     Route: 062
  2. FENTANYL [Suspect]
     Indication: WRIST FRACTURE
     Route: 062
  3. FENTANYL CITRATE [Suspect]
     Indication: PRODUCT USED FOR UNKNOWN INDICATION
     Route: 062
  4. FENTANYL [Suspect]
     Indication: PRODUCT USED FOR UNKNOWN INDICATION
     Route: 062
  5. HYDROCODONE [Suspect]
     Indication: PRODUCT USED FOR UNKNOWN INDICATION
     Route: 065
  6. CYCLOBENZAPRINE [Concomitant]
     Route: 065
  7. CITALOPRAM HYDROBROMIDE [Concomitant]
     Route: 065
  8. VENLAFAXINE HCL [Concomitant]
     Route: 065
  9. ATROPINE [Concomitant]
     Route: 065
  10. CAFFEINE [Concomitant]
     Route: 065
  11. THEOBROMINE [Concomitant]
     Route: 065
  12. MORPHINE SULFATE [Concomitant]
     Route: 042

REACTIONS (2)
  - DRUG TOXICITY [None]
  - PULMONARY EMBOLISM [None]
